FAERS Safety Report 5649085-5 (Version None)
Quarter: 2008Q1

REPORT INFORMATION
  Report Type: 
  Country: None (occurrence: None)
  Receive Date: 20080304
  Receipt Date: 20080219
  Transmission Date: 20080703
  Serious: Yes (Hospitalization)
  Sender: FDA-Public Use
  Company Number: US-ELI_LILLY_AND_COMPANY-US200802004307

PATIENT
  Sex: Male

DRUGS (7)
  1. FORTEO [Suspect]
     Indication: OSTEOPOROSIS
     Dosage: UNK, UNK
     Dates: start: 20071027
  2. FORTEO [Suspect]
  3. DARVOCET [Concomitant]
     Indication: BACK PAIN
     Dosage: UNK, DAILY (1/D), AS NEEDED
  4. PROTONIX /01263201/ [Concomitant]
     Indication: STOMACH DISCOMFORT
     Dosage: UNK, DAILY (1/D)
  5. DILTIAZEM [Concomitant]
     Indication: BLOOD PRESSURE
     Dosage: UNK, DAILY (1/D)
  6. SINGULAIR [Concomitant]
     Indication: SINUS DISORDER
     Dosage: UNK, DAILY (1/D)
  7. LYRICA [Concomitant]
     Indication: MUSCULAR WEAKNESS

REACTIONS (5)
  - CYSTITIS [None]
  - MUSCULAR WEAKNESS [None]
  - NERVE COMPRESSION [None]
  - PRURITUS [None]
  - RASH [None]
